FAERS Safety Report 24645714 (Version 1)
Quarter: 2024Q4

REPORT INFORMATION
  Report Type: Spontaneous
  Country: NL (occurrence: NL)
  Receive Date: 20241121
  Receipt Date: 20241121
  Transmission Date: 20250114
  Serious: Yes (Life-Threatening)
  Sender: TEVA
  Company Number: None

PATIENT
  Age: 67 Year
  Sex: Male
  Weight: 80.5 kg

DRUGS (4)
  1. SPIRONOLACTONE [Suspect]
     Active Substance: SPIRONOLACTONE
     Indication: Product used for unknown indication
     Dosage: 1 PIECE TWICE A DAY, / BRAND NAME NOT SPECIFIED
     Route: 048
     Dates: start: 20230327, end: 20241028
  2. SODIUM BICARBONATE [Concomitant]
     Active Substance: SODIUM BICARBONATE
     Indication: Product used for unknown indication
     Dosage: INFUSION FLUID, 84 MG/ML (MILLIGRAM PER MILLILITER), INFVLST / BRAND NAME NOT SPECIFIED,
     Route: 065
  3. CARVEDILOL [Suspect]
     Active Substance: CARVEDILOL
     Indication: Portal hypertension
     Dosage: 1 PIECE TWICE A DAY, / BRAND NAME NOT SPECIFIED,
     Route: 048
     Dates: start: 20241022, end: 20241028
  4. SORBISTERIT [Concomitant]
     Indication: Product used for unknown indication
     Dosage: 2DD20 G,POLYSTYRENE SULFONE CA PDR SUSP OR/REC 900MG/G / SORBISTERIT POWDER 90% M/M
     Route: 065

REACTIONS (4)
  - Bradycardia [Recovered/Resolved]
  - Sinus arrest [Recovered/Resolved]
  - Rhythm idioventricular [Recovered/Resolved]
  - Hyperkalaemia [Recovered/Resolved]
